FAERS Safety Report 9077267 (Version 1)
Quarter: 2013Q1

REPORT INFORMATION
  Report Type: Report from Study
  Country: US (occurrence: US)
  Receive Date: 20130129
  Receipt Date: 20130129
  Transmission Date: 20140127
  Serious: No
  Sender: FDA-Public Use
  Company Number: US-ABBOTT-12P-163-0948381-00

PATIENT
  Age: 28 None
  Sex: Female

DRUGS (2)
  1. HUMIRA 40 MG/0.8 ML PEN [Suspect]
     Indication: CROHN^S DISEASE
     Route: 058
     Dates: start: 201205, end: 201206
  2. HUMIRA 40 MG/0.8 ML PEN [Suspect]
     Dosage: LOADING DOSE
     Dates: start: 20120619

REACTIONS (4)
  - Dizziness [Unknown]
  - Injection site pain [Unknown]
  - Headache [Recovered/Resolved]
  - Regurgitation [Unknown]
